FAERS Safety Report 25113115 (Version 2)
Quarter: 2025Q2

REPORT INFORMATION
  Report Type: Report from Study
  Country: GR (occurrence: GR)
  Receive Date: 20250324
  Receipt Date: 20250403
  Transmission Date: 20250717
  Serious: Yes (Death, Other)
  Sender: ALEXION PHARMACEUTICALS
  Company Number: GR-AstraZeneca-2023A216436

PATIENT
  Age: 69 Year

DRUGS (1)
  1. OLAPARIB [Suspect]
     Active Substance: OLAPARIB
     Indication: Ovarian epithelial cancer

REACTIONS (2)
  - Acute myeloid leukaemia [Fatal]
  - Sepsis [Fatal]
